FAERS Safety Report 12071199 (Version 3)
Quarter: 2018Q2

REPORT INFORMATION
  Report Type: Report from Study
  Country: None (occurrence: GB)
  Receive Date: 20160211
  Receipt Date: 20180426
  Transmission Date: 20180711
  Serious: Yes (Death)
  Sender: FDA-Public Use
  Company Number: GB-ABBVIE-16K-167-1557190-00

PATIENT
  Sex: Female
  Weight: 72 kg

DRUGS (1)
  1. HUMIRA [Suspect]
     Active Substance: ADALIMUMAB
     Indication: RHEUMATOID ARTHRITIS
     Route: 058
     Dates: start: 20061123, end: 20150615

REACTIONS (5)
  - Acute myocardial infarction [Fatal]
  - Hypertension [Fatal]
  - Pericardial haemorrhage [Fatal]
  - Myocardial rupture [Fatal]
  - Arteriosclerosis coronary artery [Fatal]
